FAERS Safety Report 11005247 (Version 1)
Quarter: 2015Q2

REPORT INFORMATION
  Report Type: Spontaneous
  Country: IT (occurrence: IT)
  Receive Date: 20150409
  Receipt Date: 20150409
  Transmission Date: 20150821
  Serious: Yes (Hospitalization, Other)
  Sender: FDA-Public Use
  Company Number: IT-WATSON-2015-06887

PATIENT
  Age: 23 Year
  Sex: Female

DRUGS (1)
  1. PROGESTERONE (UNKNOWN) [Suspect]
     Active Substance: PROGESTERONE
     Indication: PROPHYLAXIS OF ABORTION
     Dosage: 100 MG, UNK
     Route: 067

REACTIONS (3)
  - Abortion spontaneous [Unknown]
  - Angioedema [Unknown]
  - Maternal exposure during pregnancy [Unknown]
